FAERS Safety Report 11030511 (Version 1)
Quarter: 2015Q2

REPORT INFORMATION
  Report Type: Spontaneous
  Country: US (occurrence: None)
  Receive Date: 20150409
  Receipt Date: 20150409
  Transmission Date: 20150821
  Serious: Yes (Other)
  Sender: FDA-Public Use
  Company Number: 2014FE00768

PATIENT
  Age: 9 Year
  Sex: Male

DRUGS (3)
  1. MINIRIN [Suspect]
     Active Substance: DESMOPRESSIN ACETATE
     Indication: EPISTAXIS
     Route: 045
  2. DDAVP [Suspect]
     Active Substance: DESMOPRESSIN ACETATE
     Indication: EPISTAXIS
  3. DDAVP [Suspect]
     Active Substance: DESMOPRESSIN ACETATE
     Indication: EPISTAXIS
     Dosage: UNK, FORMULATION: INJECTION

REACTIONS (3)
  - Haemorrhage [None]
  - Epistaxis [None]
  - Platelet dysfunction [None]
